FAERS Safety Report 10983298 (Version 1)
Quarter: 2015Q1

REPORT INFORMATION
  Report Type: Spontaneous
  Country: FR (occurrence: None)
  Receive Date: 20150302
  Receipt Date: 20150302
  Transmission Date: 20150721
  Serious: Yes (Other)
  Sender: FDA-Public Use
  Company Number: 2014SYM00058

PATIENT
  Age: 85 Year
  Sex: Female

DRUGS (5)
  1. TIORFAN [Concomitant]
     Active Substance: RACECADOTRIL
  2. TEMERIT [Concomitant]
     Active Substance: NEBIVOLOL
  3. ACEON [Suspect]
     Active Substance: PERINDOPRIL ERBUMINE
     Indication: PRODUCT USED FOR UNKNOWN INDICATION
     Route: 048
     Dates: start: 2011, end: 2014
  4. OROCAL [Concomitant]
     Active Substance: CALCIUM CARBONATE
  5. FENOFIBRATE. [Concomitant]
     Active Substance: FENOFIBRATE

REACTIONS (3)
  - Angioedema [None]
  - Lip oedema [None]
  - Tongue oedema [None]

NARRATIVE: CASE EVENT DATE: 20140209
